FAERS Safety Report 10645934 (Version 1)
Quarter: 2014Q4

REPORT INFORMATION
  Report Type: Report from Study
  Country: KR (occurrence: KR)
  Receive Date: 20141211
  Receipt Date: 20141211
  Transmission Date: 20150529
  Serious: Yes (Death, Hospitalization, Other)
  Sender: FDA-Public Use
  Company Number: KR-SA-2014SA168140

PATIENT
  Age: 44 Year
  Sex: Male
  Weight: 46 kg

DRUGS (2)
  1. LANTUS [Suspect]
     Active Substance: INSULIN GLARGINE
     Indication: HYPOGLYCAEMIA
     Dosage: DOSE:14 UNIT(S)
     Route: 058
     Dates: start: 20140926, end: 201411
  2. AMARYL M [Concomitant]
     Active Substance: GLIMEPIRIDE\METFORMIN
     Indication: HYPOGLYCAEMIA
     Dosage: DOSE: 2/500MG
     Route: 048
     Dates: start: 20140926, end: 201411

REACTIONS (2)
  - Bronchiolitis [Fatal]
  - Depressed level of consciousness [Unknown]

NARRATIVE: CASE EVENT DATE: 2014
